FAERS Safety Report 9899316 (Version 1)
Quarter: 2014Q1

REPORT INFORMATION
  Report Type: Spontaneous
  Country: JP (occurrence: JP)
  Receive Date: 20140214
  Receipt Date: 20140214
  Transmission Date: 20141002
  Serious: Yes (Other)
  Sender: FDA-Public Use
  Company Number: JP-MYLANLABS-2014S1002442

PATIENT
  Age: 56 Year
  Sex: Female

DRUGS (2)
  1. SUNITINIB [Suspect]
     Indication: METASTATIC RENAL CELL CARCINOMA
     Dosage: 50 MG/DAY
     Route: 065
  2. VALSARTAN [Suspect]
     Indication: HYPERTENSION
     Dosage: 80 MG/DAY
     Route: 065

REACTIONS (8)
  - Renal failure acute [Not Recovered/Not Resolved]
  - Cardiac failure congestive [Not Recovered/Not Resolved]
  - Pleural effusion [Not Recovered/Not Resolved]
  - Ascites [Not Recovered/Not Resolved]
  - Hypertension [Recovering/Resolving]
  - Hypoalbuminaemia [Recovering/Resolving]
  - Hyponatraemia [Recovering/Resolving]
  - Hypothyroidism [Recovering/Resolving]
